FAERS Safety Report 24858738 (Version 1)
Quarter: 2025Q1

REPORT INFORMATION
  Report Type: Spontaneous
  Country: US (occurrence: US)
  Receive Date: 20250118
  Receipt Date: 20250118
  Transmission Date: 20250409
  Serious: No
  Sender: AUROBINDO
  Company Number: US-AUROBINDO-AUR-APL-2023-080919

PATIENT
  Age: 80 Year
  Sex: Female
  Weight: 40.8 kg

DRUGS (1)
  1. LEVONORGESTREL [Suspect]
     Active Substance: LEVONORGESTREL
     Indication: Product used for unknown indication
     Route: 048
     Dates: start: 20231218

REACTIONS (4)
  - Abdominal pain upper [Unknown]
  - Vaginal discharge [Unknown]
  - Heavy menstrual bleeding [Unknown]
  - No adverse event [Unknown]
